FAERS Safety Report 4800252-X (Version None)
Quarter: 2005Q4

REPORT INFORMATION
  Report Type: 
  Country: None (occurrence: None)
  Receive Date: 20051017
  Receipt Date: 20050404
  Transmission Date: 20060501
  Serious: No
  Sender: FDA-Public Use
  Company Number: US-GLAXOSMITHKLINE-A0552620A

PATIENT
  Age: 1 Year
  Sex: Male

DRUGS (3)
  1. CEFTIN [Suspect]
     Indication: DRUG USE FOR UNKNOWN INDICATION
     Dosage: 250MG UNKNOWN
     Route: 048
  2. FLAVORING [Suspect]
     Route: 048
  3. ZITHROMAX [Concomitant]
     Route: 048

REACTIONS (1)
  - ORAL DISCOMFORT [None]
